FAERS Safety Report 10661072 (Version 3)
Quarter: 2015Q1

REPORT INFORMATION
  Report Type: Spontaneous
  Country: US (occurrence: US)
  Receive Date: 20141218
  Receipt Date: 20150209
  Transmission Date: 20150720
  Serious: Yes (Hospitalization)
  Sender: FDA-Public Use
  Company Number: US-BEH-2014047279

PATIENT
  Age: 55 Year
  Sex: Female
  Weight: 124 kg

DRUGS (31)
  1. SIMVASTATIN. [Concomitant]
     Active Substance: SIMVASTATIN
     Route: 048
  2. VANIQA [Concomitant]
     Active Substance: EFLORNITHINE HYDROCHLORIDE
     Route: 061
  3. QUETIAPINE [Concomitant]
     Active Substance: QUETIAPINE
     Route: 048
  4. HIZENTRA [Suspect]
     Active Substance: HUMAN IMMUNOGLOBULIN G
     Indication: IMMUNODEFICIENCY COMMON VARIABLE
     Dosage: 4 GM 20 ML VIAL
     Route: 058
  5. EPIPEN [Concomitant]
     Active Substance: EPINEPHRINE
     Dosage: 0.3 MG/0.3ML
  6. BOTOX [Concomitant]
     Active Substance: ONABOTULINUMTOXINA
  7. IRON [Concomitant]
     Active Substance: IRON
     Route: 048
  8. AZITHROMYCIN [Concomitant]
     Active Substance: AZITHROMYCIN ANHYDROUS
     Route: 048
  9. AZO CRANBERRY [Concomitant]
  10. VITAMIN B12 [Concomitant]
     Active Substance: CYANOCOBALAMIN
  11. CELEBREX [Concomitant]
     Active Substance: CELECOXIB
     Route: 048
  12. NASONEX [Concomitant]
     Active Substance: MOMETASONE FUROATE
  13. OMEPRAZOLE. [Concomitant]
     Active Substance: OMEPRAZOLE
     Route: 048
  14. KLOR-CON [Concomitant]
     Active Substance: POTASSIUM CHLORIDE
     Route: 048
  15. VITAMIN D [Concomitant]
     Active Substance: CHOLECALCIFEROL
     Route: 048
  16. FLONASE [Concomitant]
     Active Substance: FLUTICASONE PROPIONATE
     Route: 045
  17. CALCIUM CARBONATE/VITAMIN D3 [Concomitant]
  18. DIPHENHYDRAMINE [Concomitant]
     Active Substance: DIPHENHYDRAMINE
  19. CYMBALTA [Concomitant]
     Active Substance: DULOXETINE HYDROCHLORIDE
     Route: 048
  20. GABAPENTIN. [Concomitant]
     Active Substance: GABAPENTIN
     Route: 048
  21. VITAMIN B2 [Concomitant]
     Active Substance: RIBOFLAVIN
     Route: 048
  22. HIZENTRA [Suspect]
     Active Substance: HUMAN IMMUNOGLOBULIN G
     Indication: HYPOGAMMAGLOBULINAEMIA
     Dosage: 2 GM 10 ML VIAL
     Route: 058
  23. SINGULAIR [Concomitant]
     Active Substance: MONTELUKAST SODIUM
     Route: 048
  24. NALTREXONE [Concomitant]
     Active Substance: NALTREXONE
     Route: 048
  25. MULTIVITAMIN CALCIUM IRON [Concomitant]
  26. OMEGA 2 FISH OIL [Concomitant]
     Route: 048
  27. ALBUTEROL. [Concomitant]
     Active Substance: ALBUTEROL
     Route: 055
  28. ACARBOSE. [Concomitant]
     Active Substance: ACARBOSE
     Route: 048
  29. NAPROXEN. [Concomitant]
     Active Substance: NAPROXEN
     Route: 048
  30. LAMOTRIGINE. [Concomitant]
     Active Substance: LAMOTRIGINE
     Route: 048
  31. SEROQUEL [Concomitant]
     Active Substance: QUETIAPINE FUMARATE

REACTIONS (6)
  - Rehabilitation therapy [Recovered/Resolved]
  - Fall [Recovered/Resolved]
  - Rib fracture [Recovered/Resolved]
  - Traumatic lung injury [Recovered/Resolved]
  - Wound [Recovered/Resolved]
  - Hypoglycaemia [Recovered/Resolved]

NARRATIVE: CASE EVENT DATE: 20141125
